FAERS Safety Report 5923289-6 (Version None)
Quarter: 2008Q4

REPORT INFORMATION
  Report Type: 
  Country: None (occurrence: None)
  Receive Date: 20081014
  Receipt Date: 20080926
  Transmission Date: 20090506
  Serious: Yes (Other)
  Sender: FDA-Public Use
  Company Number: 2008BI017726

PATIENT
  Age: 49 Year
  Sex: Female

DRUGS (16)
  1. TYSABRI [Suspect]
     Indication: MULTIPLE SCLEROSIS
     Dosage: 300 MG; QM; IV
     Route: 030
     Dates: start: 20080612, end: 20080718
  2. PROTONIX [Concomitant]
  3. ZOLOFT [Concomitant]
  4. SYNTHROID [Concomitant]
  5. TRAZODONE HCL [Concomitant]
  6. MECLIZINE [Concomitant]
  7. DILANTIN [Concomitant]
  8. FIORINAL [Concomitant]
  9. DIAZEPAM [Concomitant]
  10. DEPAKOTE [Concomitant]
  11. AVONEX [Concomitant]
  12. REBIF [Concomitant]
  13. BETASERON [Concomitant]
  14. COPAXONE [Concomitant]
  15. AZATHIOPRINE [Concomitant]
  16. SOLU-MEDROL [Concomitant]

REACTIONS (5)
  - ARTHROPOD BITE [None]
  - BLOOD ALBUMIN DECREASED [None]
  - GRANULOMATOUS LIVER DISEASE [None]
  - LYMPHADENOPATHY [None]
  - RASH [None]
